FAERS Safety Report 18768564 (Version 1)
Quarter: 2021Q1

REPORT INFORMATION
  Report Type: Report from Study
  Country: US (occurrence: US)
  Receive Date: 20210121
  Receipt Date: 20210121
  Transmission Date: 20210419
  Serious: Yes (Hospitalization)
  Sender: FDA-Public Use
  Company Number: US-PFIZER INC-2021021975

PATIENT
  Age: 39 Year
  Sex: Female
  Weight: 78.01 kg

DRUGS (10)
  1. BINIMETINIB [Suspect]
     Active Substance: BINIMETINIB
     Indication: ADENOCARCINOMA
     Dosage: 30 MG, BID
     Route: 048
     Dates: start: 20201201, end: 20201215
  2. DOXYCYCLINE. [Concomitant]
     Active Substance: DOXYCYCLINE
     Dosage: 100 MG, BID
     Route: 048
  3. MSIR [Concomitant]
     Active Substance: MORPHINE SULFATE
     Dosage: 15 MG, Q 4 HRS PRN
     Route: 048
  4. CODEINE/GUAIFENESIN [Concomitant]
     Active Substance: CODEINE\GUAIFENESIN
     Dosage: 5?10 ML Q 6 HRS PRN
  5. MARINOL [Concomitant]
     Active Substance: DRONABINOL
     Dosage: 2.5 MG, BID
     Route: 048
  6. WELLBUTRIN [Concomitant]
     Active Substance: BUPROPION HYDROCHLORIDE
     Dosage: 75 MG, TID
     Route: 048
  7. HYDROCORTISONE. [Concomitant]
     Active Substance: HYDROCORTISONE
     Dosage: 1 APPLICATION, BID
  8. PALBOCICLIB [Suspect]
     Active Substance: PALBOCICLIB
     Dosage: 100 MG, DAILY
     Route: 048
     Dates: start: 20201201, end: 20201215
  9. DULOXETINE. [Concomitant]
     Active Substance: DULOXETINE
     Dosage: 30 MG, BID
     Route: 048
  10. BENZONATATE. [Concomitant]
     Active Substance: BENZONATATE
     Dosage: 100 MG, Q 8 HRS PRN
     Route: 048

REACTIONS (4)
  - Troponin T increased [Not Recovered/Not Resolved]
  - Blood creatine phosphokinase increased [Not Recovered/Not Resolved]
  - Dyspnoea [Not Recovered/Not Resolved]
  - Acute kidney injury [Not Recovered/Not Resolved]

NARRATIVE: CASE EVENT DATE: 20201215
